FAERS Safety Report 7488135-0 (Version None)
Quarter: 2011Q2

REPORT INFORMATION
  Report Type: 
  Country: None (occurrence: None)
  Receive Date: 20110518
  Receipt Date: 20110512
  Transmission Date: 20111010
  Serious: Yes (Death, Life-Threatening)
  Sender: FDA-Public Use
  Company Number: GB-PFIZER INC-2011102904

PATIENT
  Age: 77 Year
  Sex: Female
  Weight: 72.3 kg

DRUGS (7)
  1. ADCAL-D3 [Concomitant]
     Indication: VITAMIN D DEFICIENCY
     Dosage: UNK
     Dates: start: 20090212
  2. MIACALCIN [Concomitant]
     Indication: HYPERCALCAEMIA
     Dosage: UNK
     Route: 045
     Dates: start: 20080724
  3. PRASTERONE [Concomitant]
     Dosage: 25 MG, DAILY
     Dates: start: 20051013
  4. HYDROCORTISONE [Concomitant]
     Indication: BLOOD CORTICOTROPHIN ABNORMAL
     Dosage: UNK
     Dates: start: 19841115
  5. NAPROSYN [Concomitant]
     Indication: PAIN
     Dosage: 1000 MG, DAILY
     Dates: start: 20090212
  6. SOMATROPIN [Suspect]
     Indication: HYPOPITUITARISM
     Dosage: 0.1 MG/DAY 7 INJECTIONS/WEEK
     Dates: start: 19980113
  7. NAPROSYN [Concomitant]
     Indication: INFLAMMATION

REACTIONS (1)
  - DEATH [None]
